APPROVED DRUG PRODUCT: CAPTOPRIL
Active Ingredient: CAPTOPRIL
Strength: 12.5MG
Dosage Form/Route: TABLET;ORAL
Application: A074481 | Product #001
Applicant: SANDOZ INC
Approved: Feb 13, 1996 | RLD: No | RS: No | Type: DISCN